FAERS Safety Report 6203819-X (Version None)
Quarter: 2009Q2

REPORT INFORMATION
  Report Type: 
  Country: None (occurrence: None)
  Receive Date: 20090527
  Receipt Date: 20090514
  Transmission Date: 20091009
  Serious: Yes (Other)
  Sender: FDA-Public Use
  Company Number: A0785838A

PATIENT
  Sex: Female

DRUGS (5)
  1. ALLI [Suspect]
     Route: 048
  2. BENEFIBER [Concomitant]
  3. LYSINE [Concomitant]
  4. FISH OIL [Concomitant]
  5. MULTI-VITAMIN [Concomitant]

REACTIONS (4)
  - ABDOMINAL PAIN UPPER [None]
  - FATIGUE [None]
  - FREQUENT BOWEL MOVEMENTS [None]
  - GASTROENTERITIS VIRAL [None]
